FAERS Safety Report 7007193-0 (Version None)
Quarter: 2010Q3

REPORT INFORMATION
  Report Type: 
  Country: None (occurrence: None)
  Receive Date: 20100922
  Receipt Date: 20100902
  Transmission Date: 20110219
  Serious: Yes (Hospitalization)
  Sender: FDA-Public Use
  Company Number: BE-BAYER-201037451GPV

PATIENT
  Sex: Female
  Weight: 52 kg

DRUGS (12)
  1. NEXAVAR [Suspect]
     Indication: THYROID CANCER
     Dosage: UNIT DOSE: 200 MG
     Route: 048
     Dates: start: 20100819
  2. NULYTELY [Concomitant]
     Dosage: 2 SACHETS PER DAY
  3. DURAGESIC-100 [Concomitant]
     Indication: CANCER PAIN
     Dosage: 50 MCG/2 DAYS.
  4. MS DIRECT [Concomitant]
     Indication: CANCER PAIN
  5. ALDACTONE [Concomitant]
     Indication: HYPERTENSION
  6. LASIX [Concomitant]
     Indication: HYPERTENSION
  7. ELTHYRONE [Concomitant]
  8. CORDARONE [Concomitant]
  9. OMEPRAZOLE [Concomitant]
  10. FRAXODI [Concomitant]
  11. BISOPROLOL [Concomitant]
  12. PERINDOPRIL ERBUMINE [Concomitant]

REACTIONS (4)
  - DYSPNOEA [None]
  - FATIGUE [None]
  - GENERAL PHYSICAL HEALTH DETERIORATION [None]
  - WEIGHT DECREASED [None]
